FAERS Safety Report 17152516 (Version 2)
Quarter: 2024Q4

REPORT INFORMATION
  Report Type: Spontaneous
  Country: US (occurrence: US)
  Receive Date: 20191213
  Receipt Date: 20241213
  Transmission Date: 20250115
  Serious: No
  Sender: NOVO NORDISK
  Company Number: US-NOVOPROD-655119

PATIENT
  Age: 68 Year
  Sex: Female
  Weight: 111.13 kg

DRUGS (1)
  1. LEVEMIR [Suspect]
     Active Substance: INSULIN DETEMIR
     Indication: Type 2 diabetes mellitus
     Dosage: 31 IU, QD
     Route: 058
     Dates: start: 201904

REACTIONS (8)
  - Feeling abnormal [Recovering/Resolving]
  - Ill-defined disorder [Not Recovered/Not Resolved]
  - Illness [Unknown]
  - Blood glucose increased [Unknown]
  - Injection site pruritus [Not Recovered/Not Resolved]
  - Injection site pain [Not Recovered/Not Resolved]
  - Device malfunction [Unknown]
  - Incorrect dose administered by device [Unknown]

NARRATIVE: CASE EVENT DATE: 20190101
